FAERS Safety Report 9943287 (Version 1)
Quarter: 2014Q1

REPORT INFORMATION
  Report Type: Spontaneous
  Country: US (occurrence: US)
  Receive Date: 20140303
  Receipt Date: 20140303
  Transmission Date: 20141002
  Serious: No
  Sender: FDA-Public Use
  Company Number: US-PFIZER INC-2014057771

PATIENT
  Age: 55 Year
  Sex: Female
  Weight: 58.96 kg

DRUGS (4)
  1. PREMPRO [Suspect]
     Indication: HORMONE REPLACEMENT THERAPY
     Dosage: (ESTROGENS CONJUGATED 0.3 MG)/(MEDROXYPROGESTERONE ACETATE 1.5MG), ALTERNATE DAY
     Dates: start: 201402
  2. LEVOTHYROXINE SODIUM [Suspect]
     Indication: THYROID DISORDER
     Dosage: 88 UG, 1X/DAY
     Dates: start: 201402
  3. SYNTHROID [Concomitant]
     Indication: THYROID DISORDER
     Dosage: UNK
     Dates: end: 201402
  4. DELZICOL [Concomitant]
     Indication: COLITIS ULCERATIVE
     Dosage: 400 MG, 3X/DAY

REACTIONS (1)
  - Colitis [Unknown]
